FAERS Safety Report 6091360-7 (Version None)
Quarter: 2009Q1

REPORT INFORMATION
  Report Type: 
  Country: None (occurrence: None)
  Receive Date: 20090219
  Receipt Date: 20090219
  Transmission Date: 20090719
  Serious: Yes (Life-Threatening, Hospitalization)
  Sender: FDA-Public Use
  Company Number: None

PATIENT
  Age: 51 Year
  Sex: Female

DRUGS (1)
  1. AVASTIN [Suspect]
     Indication: OVARIAN CANCER RECURRENT
     Dosage: 10MG/KG - 830MG EVERY 3 WEEKS IV
     Route: 042
     Dates: start: 20080530, end: 20081003

REACTIONS (12)
  - BLOOD CREATINE PHOSPHOKINASE MB INCREASED [None]
  - BLOOD MAGNESIUM DECREASED [None]
  - BRAIN NATRIURETIC PEPTIDE INCREASED [None]
  - CHEST DISCOMFORT [None]
  - CHEST PAIN [None]
  - ELECTROCARDIOGRAM ST SEGMENT ELEVATION [None]
  - FIBRIN D DIMER INCREASED [None]
  - HAEMOGLOBIN DECREASED [None]
  - ILL-DEFINED DISORDER [None]
  - PLEURAL EFFUSION [None]
  - PULMONARY CONGESTION [None]
  - TROPONIN INCREASED [None]
